FAERS Safety Report 13556974 (Version 1)
Quarter: 2017Q2

REPORT INFORMATION
  Report Type: Spontaneous
  Country: US (occurrence: US)
  Receive Date: 20170517
  Receipt Date: 20170517
  Transmission Date: 20170830
  Serious: Yes (Other)
  Sender: FDA-Public Use
  Company Number: None

PATIENT
  Age: 65 Year
  Sex: Female
  Weight: 54 kg

DRUGS (7)
  1. LEVOTHYROXINE. [Concomitant]
     Active Substance: LEVOTHYROXINE
  2. ESTRADIOL. [Concomitant]
     Active Substance: ESTRADIOL
  3. BENADRYL [Concomitant]
     Active Substance: DIPHENHYDRAMINE HYDROCHLORIDE
  4. VITAMIN D3 [Concomitant]
     Active Substance: CHOLECALCIFEROL
  5. PREDNISOLONE EYE DROPS 15 ML [Suspect]
     Active Substance: PREDNISOLONE
     Indication: POSTOPERATIVE CARE
     Dosage: ?          QUANTITY:15 DROP(S);?
     Route: 047
     Dates: start: 20170424, end: 20170516
  6. LISINOPRIL. [Concomitant]
     Active Substance: LISINOPRIL
  7. FLAXSEED CAPSULES [Concomitant]

REACTIONS (3)
  - Insomnia [None]
  - Middle insomnia [None]
  - Feeling jittery [None]

NARRATIVE: CASE EVENT DATE: 20170424
